FAERS Safety Report 9469767 (Version 2)
Quarter: 2013Q3

REPORT INFORMATION
  Report Type: Report from Study
  Country: US (occurrence: US)
  Receive Date: 20130822
  Receipt Date: 20130830
  Transmission Date: 20140515
  Serious: Yes (Hospitalization)
  Sender: FDA-Public Use
  Company Number: US-JNJFOC-20130808742

PATIENT
  Age: 15 Year
  Sex: Female
  Weight: 61.1 kg

DRUGS (6)
  1. REMICADE [Suspect]
     Indication: INFLAMMATORY BOWEL DISEASE
     Route: 042
     Dates: start: 20070501
  2. METHOTREXATE [Concomitant]
     Route: 065
  3. HUMIRA [Concomitant]
     Route: 065
     Dates: start: 20080505
  4. VITAMIN D [Concomitant]
     Route: 065
  5. MULTIPLE VITAMIN [Concomitant]
     Route: 065
  6. ZOFRAN [Concomitant]
     Route: 065

REACTIONS (1)
  - Large intestine polyp [Recovered/Resolved]
